FAERS Safety Report 18384585 (Version 2)
Quarter: 2020Q4

REPORT INFORMATION
  Report Type: Spontaneous
  Country: JP (occurrence: JP)
  Receive Date: 20201014
  Receipt Date: 20201015
  Transmission Date: 20210114
  Serious: Yes (Hospitalization, Other)
  Sender: FDA-Public Use
  Company Number: JP-INCYTE CORPORATION-2020IN009864

PATIENT

DRUGS (1)
  1. JAKAVI [Suspect]
     Active Substance: RUXOLITINIB
     Indication: POLYCYTHAEMIA VERA
     Dosage: 10 MG
     Route: 048
     Dates: start: 202004, end: 202009

REACTIONS (4)
  - Pyrexia [Unknown]
  - Platelet count decreased [Unknown]
  - Anaemia [Unknown]
  - Pulmonary alveolar haemorrhage [Not Recovered/Not Resolved]

NARRATIVE: CASE EVENT DATE: 202009
